FAERS Safety Report 6096341-5 (Version None)
Quarter: 2009Q1

REPORT INFORMATION
  Report Type: 
  Country: None (occurrence: None)
  Receive Date: 20090227
  Receipt Date: 20081215
  Transmission Date: 20090719
  Serious: No
  Sender: FDA-Public Use
  Company Number: A0756808A

PATIENT
  Age: 54 Year
  Sex: Female

DRUGS (15)
  1. LAMICTAL [Suspect]
     Indication: BIPOLAR DISORDER
     Route: 048
  2. ZOLOFT [Concomitant]
  3. SEROQUEL [Concomitant]
  4. KLONOPIN [Concomitant]
  5. LITHIUM [Concomitant]
  6. SINGULAIR [Concomitant]
  7. PREMARIN [Concomitant]
  8. THYROXINE [Concomitant]
  9. ABILIFY [Concomitant]
  10. METOPROLOL [Concomitant]
  11. CLARITIN [Concomitant]
  12. ASPIRIN [Concomitant]
  13. UNKNOWN MEDICATION [Concomitant]
  14. CITRUCEL [Concomitant]
  15. OMEPRAZOLE [Concomitant]

REACTIONS (2)
  - RASH [None]
  - SEBORRHOEIC DERMATITIS [None]
